FAERS Safety Report 6853363-1 (Version None)
Quarter: 2010Q3

REPORT INFORMATION
  Report Type: 
  Country: None (occurrence: None)
  Receive Date: 20100717
  Receipt Date: 20071204
  Transmission Date: 20110219
  Serious: No
  Sender: FDA-Public Use
  Company Number: US-PFIZER INC-2007104123

PATIENT
  Sex: Female
  Weight: 56.818 kg

DRUGS (7)
  1. CHANTIX [Suspect]
     Indication: SMOKING CESSATION THERAPY
     Route: 048
     Dates: start: 20071101
  2. CRESTOR [Concomitant]
  3. ALL OTHER THERAPEUTIC PRODUCTS [Concomitant]
     Indication: MACULAR DEGENERATION
     Route: 047
  4. MIACALCIN [Concomitant]
     Indication: OSTEOPOROSIS
     Route: 045
  5. CALCIUM [Concomitant]
  6. MONTELUKAST SODIUM [Concomitant]
  7. VOLTAREN [Concomitant]

REACTIONS (2)
  - ABDOMINAL PAIN UPPER [None]
  - NAUSEA [None]
